FAERS Safety Report 6444609-2 (Version None)
Quarter: 2009Q4

REPORT INFORMATION
  Report Type: 
  Country: None (occurrence: None)
  Receive Date: 20091110
  Receipt Date: 20090925
  Transmission Date: 20100525
  Serious: No
  Sender: FDA-Public Use
  Company Number: 1000009110

PATIENT
  Age: 43 Year
  Sex: Male

DRUGS (10)
  1. SAVELLA [Suspect]
     Indication: PAIN
     Dosage: SEE IMAGE
     Route: 048
     Dates: start: 20090918, end: 20090918
  2. SAVELLA [Suspect]
     Indication: PAIN
     Dosage: SEE IMAGE
     Route: 048
     Dates: start: 20090919, end: 20090920
  3. SAVELLA [Suspect]
     Indication: PAIN
     Dosage: SEE IMAGE
     Route: 048
     Dates: start: 20090921, end: 20090924
  4. SAVELLA [Suspect]
     Indication: PAIN
     Dosage: SEE IMAGE
     Route: 048
     Dates: start: 20090925
  5. DEPAKOTE [Concomitant]
  6. NEURONTIN [Concomitant]
  7. DARVOCET [Concomitant]
  8. DIGOXIN [Concomitant]
  9. ATENOLOL [Concomitant]
  10. FIORICET [Concomitant]

REACTIONS (1)
  - DRY MOUTH [None]
